FAERS Safety Report 8008986-3 (Version None)
Quarter: 2011Q4

REPORT INFORMATION
  Report Type: 
  Country: None (occurrence: None)
  Receive Date: 20111227
  Receipt Date: 20111220
  Transmission Date: 20120403
  Serious: No
  Sender: FDA-Public Use
  Company Number: US-PFIZER INC-2011310788

PATIENT
  Sex: Female
  Weight: 61.224 kg

DRUGS (2)
  1. PRISTIQ [Suspect]
     Indication: MENOPAUSE
  2. PRISTIQ [Suspect]
     Indication: DEPRESSION
     Dosage: 50 MG, DAILY
     Dates: start: 20090601

REACTIONS (4)
  - NAUSEA [None]
  - WITHDRAWAL SYNDROME [None]
  - DIZZINESS [None]
  - HEADACHE [None]
